FAERS Safety Report 6474317-3 (Version None)
Quarter: 2009Q4

REPORT INFORMATION
  Report Type: 
  Country: None (occurrence: None)
  Receive Date: 20091204
  Receipt Date: 20091123
  Transmission Date: 20100525
  Serious: Yes (Hospitalization)
  Sender: FDA-Public Use
  Company Number: US-JNJFOC-20090606642

PATIENT
  Sex: Male
  Weight: 90.09 kg

DRUGS (16)
  1. CNTO 1275 [Suspect]
     Route: 058
  2. CNTO 1275 [Suspect]
     Route: 058
  3. CNTO 1275 [Suspect]
     Route: 058
  4. CNTO 1275 [Suspect]
     Route: 058
  5. CNTO 1275 [Suspect]
     Route: 058
  6. CNTO 1275 [Suspect]
     Route: 058
  7. CNTO 1275 [Suspect]
     Route: 058
  8. CNTO 1275 [Suspect]
     Route: 058
  9. CNTO 1275 [Suspect]
     Route: 058
  10. CNTO 1275 [Suspect]
     Route: 058
  11. CNTO 1275 [Suspect]
     Route: 058
  12. CNTO 1275 [Suspect]
     Route: 058
  13. CNTO 1275 [Suspect]
     Route: 058
  14. CNTO 1275 [Suspect]
     Indication: PSORIASIS
     Route: 058
  15. PENICILLIN VK [Concomitant]
     Route: 048
  16. ZYRTEC [Concomitant]
     Route: 048

REACTIONS (2)
  - HYPERTRIGLYCERIDAEMIA [None]
  - PANCREATITIS [None]
